FAERS Safety Report 13062548 (Version 1)
Quarter: 2016Q4

REPORT INFORMATION
  Report Type: Spontaneous
  Country: FR (occurrence: FR)
  Receive Date: 20161226
  Receipt Date: 20161226
  Transmission Date: 20170207
  Serious: Yes (Life-Threatening)
  Sender: FDA-Public Use
  Company Number: FR-ASTRAZENECA-2016SF36487

PATIENT
  Age: 17241 Day
  Sex: Female

DRUGS (4)
  1. XANAX [Suspect]
     Active Substance: ALPRAZOLAM
     Indication: ANXIETY
     Route: 065
  2. XEROQUEL [Suspect]
     Active Substance: QUETIAPINE FUMARATE
     Indication: AFFECTIVE DISORDER
     Route: 048
  3. EFFEXOR [Suspect]
     Active Substance: VENLAFAXINE HYDROCHLORIDE
     Indication: AFFECTIVE DISORDER
     Route: 065
  4. SELINCRO [Suspect]
     Active Substance: NALMEFENE HYDROCHLORIDE DIHYDRATE
     Indication: ALCOHOLISM
     Route: 065

REACTIONS (3)
  - Product use issue [Recovered/Resolved]
  - Thrombotic thrombocytopenic purpura [Recovering/Resolving]
  - Off label use [Recovered/Resolved]

NARRATIVE: CASE EVENT DATE: 20161118
